FAERS Safety Report 14223331 (Version 5)
Quarter: 2019Q2

REPORT INFORMATION
  Report Type: Report from Study
  Country: US (occurrence: US)
  Receive Date: 20171124
  Receipt Date: 20190522
  Transmission Date: 20190711
  Serious: Yes (Death, Hospitalization)
  Sender: FDA-Public Use
  Company Number: US-ROCHE-2026815

PATIENT
  Age: 61 Year
  Sex: Male
  Weight: 65.97 kg

DRUGS (28)
  1. LORATADINE. [Concomitant]
     Active Substance: LORATADINE
     Indication: NASAL CONGESTION
     Route: 048
     Dates: start: 20170911
  2. PSEUDOEPHEDRINE HYDROCHLORIDE. [Concomitant]
     Active Substance: PSEUDOEPHEDRINE HYDROCHLORIDE
     Indication: NASAL CONGESTION
     Route: 065
     Dates: start: 20170911
  3. MIDODRINE [Concomitant]
     Active Substance: MIDODRINE
     Route: 065
     Dates: start: 20171009
  4. RITUXIMAB. [Suspect]
     Active Substance: RITUXIMAB
     Indication: DIFFUSE LARGE B-CELL LYMPHOMA
     Dosage: DAY 1 OF EACH 28-DAY CYCLE?MOST RECENT DOSE BEFORE THE EVENT WAS 653 MG DAY 1 OF EACH 28-DAY CYCLE F
     Route: 042
     Dates: start: 20170911, end: 20170911
  5. RIVAROXABAN [Concomitant]
     Active Substance: RIVAROXABAN
     Indication: DEEP VEIN THROMBOSIS
     Route: 048
     Dates: start: 20170725
  6. FAMOTIDINE. [Concomitant]
     Active Substance: FAMOTIDINE
     Route: 065
     Dates: start: 20170911
  7. METRONIDAZOLE. [Concomitant]
     Active Substance: METRONIDAZOLE
     Dosage: 500MG/100ML
     Route: 065
     Dates: start: 20170923
  8. DEXAMETHASONE. [Concomitant]
     Active Substance: DEXAMETHASONE
     Route: 042
  9. BENDAMUSTINE [Suspect]
     Active Substance: BENDAMUSTINE
     Indication: DIFFUSE LARGE B-CELL LYMPHOMA
     Dosage: 2 CONSECUTIVE DAYS OF EACH 28-DAY CYCLE?MOST RECENT DOSE BEFORE THE EVENT WAS 156.5 MG 2 CONSECUTIVE
     Route: 041
     Dates: start: 20170912
  10. SOLU-MEDROL [Concomitant]
     Active Substance: METHYLPREDNISOLONE SODIUM SUCCINATE
  11. TOBRAMYCIN. [Concomitant]
     Active Substance: TOBRAMYCIN
     Dosage: TOBRAMYCIN 320MG IN SODIUM CHLORIDE 0.9% 117.5ML
     Route: 065
  12. CEFEPIME HYDROCHLORIDE. [Concomitant]
     Active Substance: CEFEPIME HYDROCHLORIDE
     Route: 065
     Dates: start: 20171005
  13. MEGLUMINE AMIDOTRIZOATE [Concomitant]
     Dosage: 66-10 %
     Route: 048
     Dates: start: 20171006
  14. FLUCONAZOLE. [Concomitant]
     Active Substance: FLUCONAZOLE
     Route: 065
     Dates: start: 20171007
  15. MIRTAZAPINE. [Concomitant]
     Active Substance: MIRTAZAPINE
     Route: 065
     Dates: start: 20171010
  16. OMEPRAZOLE. [Concomitant]
     Active Substance: OMEPRAZOLE
     Indication: GASTROOESOPHAGEAL REFLUX DISEASE
     Route: 048
     Dates: start: 20170705
  17. UNASYN [AMPICILLIN SODIUM;SULBACTAM SODIUM] [Concomitant]
     Route: 042
  18. VANCOMYCIN [Concomitant]
     Active Substance: VANCOMYCIN
     Route: 065
  19. FUROSEMIDE. [Concomitant]
     Active Substance: FUROSEMIDE
     Route: 065
     Dates: start: 20171002
  20. METHYLPHENIDATE. [Concomitant]
     Active Substance: METHYLPHENIDATE
     Route: 065
     Dates: start: 20171010
  21. GLUCOSE [Concomitant]
     Active Substance: DEXTROSE
  22. AVELUMAB [Suspect]
     Active Substance: AVELUMAB
     Indication: DIFFUSE LARGE B-CELL LYMPHOMA
     Dosage: EVERY 2 WEEKS, EACH 28-DAY CYCLE,?MOST RECENT DOSE BEFORE THE EVENT WAS 610 MG EVERY 2 WEEKS, EACH 2
     Route: 041
     Dates: start: 20170912, end: 20170912
  23. ALBUMIN HUMAN [Concomitant]
     Active Substance: ALBUMIN HUMAN
     Route: 065
     Dates: start: 20170930
  24. METOLAZONE. [Concomitant]
     Active Substance: METOLAZONE
     Route: 065
     Dates: start: 20171010
  25. DEXTROSE. [Concomitant]
     Active Substance: DEXTROSE
     Dosage: DEXTROSE 5 %
     Route: 065
     Dates: start: 20171005
  26. FLUTICASONE. [Concomitant]
     Active Substance: FLUTICASONE
     Indication: SINUS CONGESTION
     Route: 065
     Dates: start: 20170911
  27. GLYCOPYRRONIUM [Concomitant]
     Active Substance: GLYCOPYRRONIUM
     Route: 065
     Dates: start: 20170923
  28. MEROPENEM. [Concomitant]
     Active Substance: MEROPENEM
     Route: 065
     Dates: start: 20171012

REACTIONS (2)
  - Dyspnoea [Recovered/Resolved]
  - Laryngeal oedema [Recovered/Resolved]

NARRATIVE: CASE EVENT DATE: 20170917
